FAERS Safety Report 14596416 (Version 1)
Quarter: 2018Q1

REPORT INFORMATION
  Report Type: Spontaneous
  Country: NL (occurrence: NL)
  Receive Date: 20180303
  Receipt Date: 20180303
  Transmission Date: 20180509
  Serious: Yes (Hospitalization)
  Sender: FDA-Public Use
  Company Number: PHHY2015NL177600

PATIENT

DRUGS (5)
  1. 5-FLUOROURACIL [Suspect]
     Active Substance: FLUOROURACIL
     Dosage: 400 MG/M2, UNK (DATE OF LAST DOSE PRIOR TO AE: 15AUG2015)
     Route: 040
  2. 5-FLUOROURACIL [Suspect]
     Active Substance: FLUOROURACIL
     Indication: COLORECTAL CANCER
     Dosage: 2400 MG/M2, UNK (DATE OF LAST DOSE PRIOR TO AE: 15 AUG 2015)
     Route: 041
     Dates: start: 20150730
  3. OXALIPLATIN. [Suspect]
     Active Substance: OXALIPLATIN
     Indication: COLORECTAL CANCER
     Dosage: 85 MG/M2, UNK (DATE OF LAST DOSE PRIOR TO AE: 13AUG2015)
     Route: 042
     Dates: start: 20150730
  4. AVASTIN [Suspect]
     Active Substance: BEVACIZUMAB
     Indication: COLORECTAL CANCER
     Dosage: 5 MG/KG, UNK (DATE OF LAST DOSE PRIOR TO AE: 13 AUG 2015)
     Route: 042
     Dates: start: 20150730
  5. LEUCOVORIN. [Suspect]
     Active Substance: LEUCOVORIN
     Indication: COLORECTAL CANCER
     Dosage: 400 MG/M2, UNK (TE OF LAST DOSE PRIOR TO AE: 13AUG2015)
     Route: 042
     Dates: start: 20150730

REACTIONS (3)
  - Large intestine perforation [Recovered/Resolved]
  - Abdominal pain [Recovered/Resolved]
  - Diverticulitis [Recovered/Resolved]

NARRATIVE: CASE EVENT DATE: 20150821
